FAERS Safety Report 4336080-1 (Version None)
Quarter: 2004Q2

REPORT INFORMATION
  Report Type: 
  Country: None (occurrence: None)
  Receive Date: 20040406
  Receipt Date: 20021113
  Transmission Date: 20050107
  Serious: Yes (Other)
  Sender: FDA-Public Use
  Company Number: 2002IC000317

PATIENT
  Age: 61 Year
  Sex: Male

DRUGS (11)
  1. FLUOROURACIL [Suspect]
     Indication: OESOPHAGEAL CARCINOMA
     Dosage: 1250 MG;INTRAVENOUS
     Route: 042
     Dates: start: 20020701, end: 20020703
  2. CISPLATIN [Suspect]
     Indication: OESOPHAGEAL CARCINOMA
     Dosage: 90 MG;INTRAVENOUS
     Route: 042
     Dates: start: 20020701, end: 20020701
  3. HUMULIN R [Concomitant]
  4. PRIMPERAN INJ [Concomitant]
  5. DECADRON [Concomitant]
  6. SEROTONE [Concomitant]
  7. MANNIGEN [Concomitant]
  8. LASIX [Concomitant]
  9. HALOPERIDOL [Concomitant]
  10. VOLTAREN [Concomitant]
  11. .. [Concomitant]

REACTIONS (7)
  - APHAGIA [None]
  - CEREBRAL INFARCTION [None]
  - COMA [None]
  - EYE MOVEMENT DISORDER [None]
  - HYPERGLYCAEMIA [None]
  - HYPERTENSION [None]
  - VOMITING [None]
